FAERS Safety Report 4806392-3 (Version None)
Quarter: 2005Q4

REPORT INFORMATION
  Report Type: 
  Country: None (occurrence: None)
  Receive Date: 20051019
  Receipt Date: 20051003
  Transmission Date: 20060501
  Serious: Yes (Hospitalization, Other)
  Sender: FDA-Public Use
  Company Number: US_991131170

PATIENT
  Age: 71 Year
  Sex: Female
  Weight: 82 kg

DRUGS (4)
  1. HUMULIN N [Suspect]
     Indication: DIABETES MELLITUS
     Dosage: 49 U/DAY
     Dates: start: 19980101
  2. HUMULIN 70/30 [Suspect]
     Indication: DIABETES MELLITUS
     Dosage: 20 U/1 DAY
     Dates: start: 19890101
  3. GLUCOTROL [Concomitant]
  4. LANTUS [Concomitant]

REACTIONS (10)
  - ANXIETY [None]
  - CARDIAC PACEMAKER INSERTION [None]
  - CATARACT [None]
  - CHEST PAIN [None]
  - CHROMATURIA [None]
  - DYSURIA [None]
  - EYE HAEMORRHAGE [None]
  - MEMORY IMPAIRMENT [None]
  - PAIN IN EXTREMITY [None]
  - STRESS [None]
